FAERS Safety Report 14738256 (Version 2)
Quarter: 2018Q2

REPORT INFORMATION
  Report Type: Report from Study
  Country: US (occurrence: US)
  Receive Date: 20180409
  Receipt Date: 20180419
  Transmission Date: 20180711
  Serious: Yes (Hospitalization)
  Sender: FDA-Public Use
  Company Number: US-PFIZER INC-2018139758

PATIENT
  Age: 62 Year
  Sex: Male
  Weight: 75.1 kg

DRUGS (1)
  1. SUTENT [Suspect]
     Active Substance: SUNITINIB MALATE
     Dosage: 50 MG/DAY
     Route: 048

REACTIONS (1)
  - Dehydration [Recovered/Resolved]
